FAERS Safety Report 17114674 (Version 2)
Quarter: 2019Q4

REPORT INFORMATION
  Report Type: Spontaneous
  Country: TW (occurrence: TW)
  Receive Date: 20191205
  Receipt Date: 20191230
  Transmission Date: 20200122
  Serious: Yes (Hospitalization, Other)
  Sender: FDA-Public Use
  Company Number: TW-GILEAD-2019-0441197

PATIENT
  Age: 48 Year
  Sex: Male

DRUGS (1)
  1. EPCLUSA [Suspect]
     Active Substance: SOFOSBUVIR\VELPATASVIR
     Indication: CHRONIC HEPATITIS C
     Dosage: UNK
     Route: 065
     Dates: start: 20191029

REACTIONS (1)
  - Oesophageal varices haemorrhage [Unknown]

NARRATIVE: CASE EVENT DATE: 20191130
